FAERS Safety Report 25627224 (Version 1)
Quarter: 2025Q3

REPORT INFORMATION
  Report Type: Spontaneous
  Country: CA (occurrence: CA)
  Receive Date: 20250731
  Receipt Date: 20250731
  Transmission Date: 20251020
  Serious: Yes (Hospitalization)
  Sender: PFIZER
  Company Number: CA-PFIZER INC-202500153004

PATIENT
  Age: 20 Year
  Sex: Female
  Weight: 65 kg

DRUGS (9)
  1. DOXORUBICIN HYDROCHLORIDE [Suspect]
     Active Substance: DOXORUBICIN HYDROCHLORIDE
     Indication: Sarcoma uterus
     Dosage: 50 MG, 1X/DAY (1 EVERY 1 DAYS)
     Route: 042
  2. VINCRISTINE SULFATE [Suspect]
     Active Substance: VINCRISTINE SULFATE
     Indication: Sarcoma uterus
     Route: 042
  3. COSMEGEN [Suspect]
     Active Substance: DACTINOMYCIN
     Indication: Sarcoma uterus
     Route: 042
  4. IFOSFAMIDE [Suspect]
     Active Substance: IFOSFAMIDE
     Indication: Sarcoma uterus
     Dosage: 5000 MG, 1X/DAY (1 EVERY 1 DAYS)
     Route: 042
  5. DEXAMETHASONE [Concomitant]
     Active Substance: DEXAMETHASONE
     Route: 014
  6. DEXRAZOXANE [Concomitant]
     Active Substance: DEXRAZOXANE
     Route: 042
  7. MESNA [Concomitant]
     Active Substance: MESNA
  8. OLANZAPINE [Concomitant]
     Active Substance: OLANZAPINE
  9. ONDANSETRON [Concomitant]
     Active Substance: ONDANSETRON

REACTIONS (1)
  - Mucosal inflammation [Recovered/Resolved]
